FAERS Safety Report 4937160-X (Version None)
Quarter: 2006Q1

REPORT INFORMATION
  Report Type: 
  Country: None (occurrence: None)
  Receive Date: 20060307
  Receipt Date: 20060307
  Transmission Date: 20060701
  Serious: Yes (Other)
  Sender: FDA-Public Use
  Company Number: None

PATIENT
  Age: 49 Year
  Sex: Male

DRUGS (1)
  1. ANCEF [Suspect]
     Indication: PROPHYLAXIS
     Dosage: 2 GMS IV ONE TIME
     Route: 042

REACTIONS (4)
  - ERYTHEMA [None]
  - INFUSION RELATED REACTION [None]
  - SNEEZING [None]
  - THROAT IRRITATION [None]
